FAERS Safety Report 5580358-0 (Version None)
Quarter: 2008Q1

REPORT INFORMATION
  Report Type: 
  Country: None (occurrence: None)
  Receive Date: 20080103
  Receipt Date: 20080102
  Transmission Date: 20080703
  Serious: Yes (Hospitalization)
  Sender: FDA-Public Use
  Company Number: US-BRISTOL-MYERS SQUIBB COMPANY-14026587

PATIENT
  Age: 37 Year
  Sex: Male
  Weight: 84 kg

DRUGS (18)
  1. CISPLATIN [Suspect]
     Route: 042
     Dates: start: 20071212, end: 20071212
  2. ERBITUX [Suspect]
     Dates: start: 20071216
  3. RADIATION THERAPY [Suspect]
  4. NORPRAMIN [Concomitant]
  5. PEPCID [Concomitant]
  6. TRIAM [Concomitant]
  7. FOLIC ACID [Concomitant]
  8. NORVASC [Concomitant]
  9. LOTENSIN [Concomitant]
  10. METHADONE HCL [Concomitant]
  11. METFORMIN [Concomitant]
  12. BUSPAR [Concomitant]
  13. SEROQUEL [Concomitant]
  14. HYDROCHLOROTHIAZIDE [Concomitant]
  15. GLUCOVANCE [Concomitant]
  16. GLYBURIDE [Concomitant]
  17. ATIVAN [Concomitant]
  18. MULTI-VITAMIN [Concomitant]

REACTIONS (5)
  - ALCOHOL WITHDRAWAL SYNDROME [None]
  - DRUG SCREEN POSITIVE [None]
  - NAUSEA [None]
  - TACHYCARDIA [None]
  - VOMITING [None]
